FAERS Safety Report 17757541 (Version 2)
Quarter: 2020Q2

REPORT INFORMATION
  Report Type: Report from Study
  Country: US (occurrence: US)
  Receive Date: 20200507
  Receipt Date: 20200513
  Transmission Date: 20200714
  Serious: Yes (Hospitalization)
  Sender: FDA-Public Use
  Company Number: US-GLAXOSMITHKLINE-US2020GSK076576

PATIENT
  Sex: Male
  Weight: 75 kg

DRUGS (1)
  1. ROLAPITANT HYDROCHLORIDE [Suspect]
     Active Substance: ROLAPITANT
     Indication: PLASMA CELL MYELOMA
     Dosage: 2 DF, Z (EVERY 2 WEEKS AS DIRECTED)
     Route: 048

REACTIONS (2)
  - Disease progression [Unknown]
  - Hospitalisation [Unknown]
